FAERS Safety Report 10196000 (Version 2)
Quarter: 2014Q2

REPORT INFORMATION
  Report Type: Spontaneous
  Country: US (occurrence: None)
  Receive Date: 20140522
  Receipt Date: 20140529
  Transmission Date: 20141212
  Serious: Yes (Hospitalization)
  Sender: FDA-Public Use
  Company Number: UNT-2014-000154

PATIENT
  Age: 70 Year
  Sex: Female
  Weight: 85.7 kg

DRUGS (4)
  1. REMODULIN [Suspect]
     Indication: PULMONARY ARTERIAL HYPERTENSION
     Dosage: 0.001 UG/KG/MIN, CONTINUING, SUBCUTANEOUS
     Route: 058
     Dates: start: 20140505
  2. TYVASO [Suspect]
     Indication: PULMONARY ARTERIAL HYPERTENSION
     Route: 055
     Dates: start: 20130917, end: 20140505
  3. LETAIRIS (AMBRISENTAN) (10 MILLIGRAM, TABLET) (AMBRISENTAN) [Concomitant]
  4. ADCIRCA (TADALAFIL) [Concomitant]

REACTIONS (4)
  - Infusion site erythema [None]
  - Infusion site pain [None]
  - Infusion site pruritus [None]
  - Drug ineffective [None]
